FAERS Safety Report 25587492 (Version 1)
Quarter: 2025Q3

REPORT INFORMATION
  Report Type: Report from Study
  Country: US (occurrence: US)
  Receive Date: 20250721
  Receipt Date: 20250721
  Transmission Date: 20251020
  Serious: Yes (Other)
  Sender: MYLAN
  Company Number: US-MYLANLABS-2025M1060509

PATIENT
  Sex: Male

DRUGS (20)
  1. DOCETAXEL [Suspect]
     Active Substance: DOCETAXEL
     Indication: Prostate cancer
  2. DOCETAXEL [Suspect]
     Active Substance: DOCETAXEL
     Route: 065
  3. DOCETAXEL [Suspect]
     Active Substance: DOCETAXEL
     Route: 065
  4. DOCETAXEL [Suspect]
     Active Substance: DOCETAXEL
  5. BICALUTAMIDE [Suspect]
     Active Substance: BICALUTAMIDE
     Indication: Prostate cancer
  6. BICALUTAMIDE [Suspect]
     Active Substance: BICALUTAMIDE
     Route: 065
  7. BICALUTAMIDE [Suspect]
     Active Substance: BICALUTAMIDE
     Route: 065
  8. BICALUTAMIDE [Suspect]
     Active Substance: BICALUTAMIDE
  9. ENZALUTAMIDE [Suspect]
     Active Substance: ENZALUTAMIDE
     Indication: Prostate cancer
  10. ENZALUTAMIDE [Suspect]
     Active Substance: ENZALUTAMIDE
     Route: 065
  11. ENZALUTAMIDE [Suspect]
     Active Substance: ENZALUTAMIDE
     Route: 065
  12. ENZALUTAMIDE [Suspect]
     Active Substance: ENZALUTAMIDE
  13. VEMURAFENIB [Concomitant]
     Active Substance: VEMURAFENIB
     Indication: BRAF gene mutation
  14. VEMURAFENIB [Concomitant]
     Active Substance: VEMURAFENIB
     Route: 065
  15. VEMURAFENIB [Concomitant]
     Active Substance: VEMURAFENIB
     Route: 065
  16. VEMURAFENIB [Concomitant]
     Active Substance: VEMURAFENIB
  17. COBIMETINIB [Concomitant]
     Active Substance: COBIMETINIB
     Indication: BRAF gene mutation
  18. COBIMETINIB [Concomitant]
     Active Substance: COBIMETINIB
     Route: 065
  19. COBIMETINIB [Concomitant]
     Active Substance: COBIMETINIB
     Route: 065
  20. COBIMETINIB [Concomitant]
     Active Substance: COBIMETINIB

REACTIONS (2)
  - Drug ineffective [Unknown]
  - Disease progression [Unknown]
